FAERS Safety Report 24746913 (Version 2)
Quarter: 2025Q1

REPORT INFORMATION
  Report Type: Spontaneous
  Country: US (occurrence: US)
  Receive Date: 20241218
  Receipt Date: 20250116
  Transmission Date: 20250409
  Serious: No
  Sender: FDC LIMITED
  Company Number: US-FDC-2024USSPO00897

PATIENT
  Age: 72 Year
  Sex: Female
  Weight: 61.2 kg

DRUGS (2)
  1. TIMOLOL MALEATE [Suspect]
     Active Substance: TIMOLOL MALEATE
     Indication: Glaucoma
     Dosage: ONE DROP IN EACH EYE
     Route: 047
     Dates: start: 20241122
  2. LOTEPREDNOL ETABONATE [Concomitant]
     Active Substance: LOTEPREDNOL ETABONATE
     Indication: Product used for unknown indication
     Route: 065

REACTIONS (1)
  - Fatigue [Not Recovered/Not Resolved]

NARRATIVE: CASE EVENT DATE: 20241122
